FAERS Safety Report 10391037 (Version 1)
Quarter: 2014Q3

REPORT INFORMATION
  Report Type: Spontaneous
  Country: FR (occurrence: PT)
  Receive Date: 20140818
  Receipt Date: 20140818
  Transmission Date: 20150326
  Serious: Yes (Hospitalization)
  Sender: FDA-Public Use
  Company Number: FR-VERTEX PHARMACEUTICALS (CANADA)-2014-003487

PATIENT
  Age: 62 Year
  Sex: Male

DRUGS (12)
  1. PEGASYS [Suspect]
     Active Substance: PEGINTERFERON ALFA-2A
     Indication: HEPATITIS VIRAL
     Dosage: 180 ?G, UNK
     Route: 065
     Dates: start: 20111208, end: 20120423
  2. METRONIDAZOL [Concomitant]
     Active Substance: METRONIDAZOLE
     Indication: PYREXIA
     Dosage: DOSAGE FORM: UNSPECIFIED
     Route: 065
  3. METFORMINE [Concomitant]
     Active Substance: METFORMIN HYDROCHLORIDE
     Indication: DIABETES MELLITUS
     Dosage: DOSAGE FORM: UNSPECIFIED
     Route: 065
     Dates: end: 20120423
  4. INSULIN [Concomitant]
     Active Substance: INSULIN NOS
     Indication: DIABETES MELLITUS
     Dosage: UNK
     Route: 058
  5. SOMATULINE PR [Concomitant]
     Indication: ACROMEGALY
     Dosage: DOSAGE FORM: UNSPECIFIED
     Route: 065
  6. HYDROCORTISONE. [Concomitant]
     Active Substance: HYDROCORTISONE
     Indication: ACROMEGALY
     Dosage: DOSAGE FORM: UNSPECIFIED
     Route: 065
     Dates: end: 20120423
  7. FUROSEMIDE. [Concomitant]
     Active Substance: FUROSEMIDE
     Indication: ASCITES
     Dosage: UNK
     Route: 065
     Dates: start: 20120506, end: 20120526
  8. DIAMICRON [Concomitant]
     Active Substance: GLICLAZIDE
     Indication: DIABETES MELLITUS
     Dosage: DOSAGE FORM: UNSPECIFIED
     Route: 065
     Dates: end: 20120423
  9. INCIVO [Suspect]
     Active Substance: TELAPREVIR
     Indication: HEPATITIS VIRAL
     Dosage: 750 MG, TID
     Route: 048
     Dates: start: 20111208, end: 20120423
  10. RIBAVIRIN. [Suspect]
     Active Substance: RIBAVIRIN
     Indication: HEPATITIS VIRAL
     Dosage: 1000 MG, UNK
     Route: 065
     Dates: start: 20111208, end: 20120423
  11. SPIRONOLACTONE. [Concomitant]
     Active Substance: SPIRONOLACTONE
     Indication: ASCITES
     Dosage: DOSAGE FORM: UNSPECIFIED
     Route: 065
     Dates: start: 20120506
  12. MEROPENEM. [Concomitant]
     Active Substance: MEROPENEM
     Indication: PYREXIA
     Dosage: UNK
     Route: 042

REACTIONS (6)
  - Ascites [Recovering/Resolving]
  - Jejunal ulcer perforation [Recovered/Resolved]
  - Haemoglobin decreased [Unknown]
  - Jaundice [Recovered/Resolved]
  - Diabetes mellitus [Unknown]
  - Pyrexia [Recovered/Resolved]

NARRATIVE: CASE EVENT DATE: 20120423
